FAERS Safety Report 25335969 (Version 1)
Quarter: 2025Q2

REPORT INFORMATION
  Report Type: Report from Study
  Country: US (occurrence: US)
  Receive Date: 20250520
  Receipt Date: 20250520
  Transmission Date: 20250717
  Serious: Yes (Hospitalization)
  Sender: EISAI
  Company Number: US-Eisai-EC-2025-187632

PATIENT
  Age: 72 Year
  Sex: Male

DRUGS (2)
  1. LENVIMA [Suspect]
     Active Substance: LENVATINIB
     Indication: Renal cancer
     Dates: start: 20250401, end: 20250501
  2. LENVIMA [Suspect]
     Active Substance: LENVATINIB
     Dates: start: 202505

REACTIONS (11)
  - Haemoptysis [Recovering/Resolving]
  - Cardiac disorder [Unknown]
  - Platelet count decreased [Unknown]
  - Fatigue [Not Recovered/Not Resolved]
  - Dry mouth [Unknown]
  - Balance disorder [Unknown]
  - Confusional state [Unknown]
  - Stomatitis [Unknown]
  - Eating disorder [Unknown]
  - Haemorrhage [Unknown]
  - Heart rate increased [Recovering/Resolving]

NARRATIVE: CASE EVENT DATE: 20250401
